FAERS Safety Report 9094341 (Version 1)
Quarter: 2013Q1

REPORT INFORMATION
  Report Type: Report from Study
  Country: NL (occurrence: NL)
  Receive Date: 20130218
  Receipt Date: 20130218
  Transmission Date: 20140127
  Serious: Yes (Other)
  Sender: FDA-Public Use
  Company Number: NL-ROCHE-567118

PATIENT
  Sex: 0

DRUGS (5)
  1. TRASTUZUMAB [Suspect]
     Indication: BREAST CANCER METASTATIC
     Dosage: LOADING DOSE
     Route: 042
  2. TRASTUZUMAB [Suspect]
     Route: 065
  3. LONAFARNIB [Suspect]
     Indication: BREAST CANCER METASTATIC
     Route: 048
  4. PACLITAXEL [Suspect]
     Indication: BREAST CANCER METASTATIC
     Route: 065
  5. PACLITAXEL [Suspect]
     Route: 065

REACTIONS (8)
  - Neutropenia [Unknown]
  - Hypersensitivity [Unknown]
  - Breast cancer metastatic [Unknown]
  - Leukopenia [Unknown]
  - Hyperglycaemia [Unknown]
  - Gamma-glutamyltransferase [Unknown]
  - Tumour pain [Unknown]
  - Diarrhoea [Unknown]
